FAERS Safety Report 9351406 (Version 2)
Quarter: 2013Q2

REPORT INFORMATION
  Report Type: Spontaneous
  Country: FR (occurrence: FR)
  Receive Date: 20130617
  Receipt Date: 20130627
  Transmission Date: 20140414
  Serious: Yes (Other)
  Sender: FDA-Public Use
  Company Number: FR-TEVA-412530ISR

PATIENT
  Age: 70 Year
  Sex: Female

DRUGS (3)
  1. FUROSEMIDE TEVA 40 MG [Suspect]
     Indication: OEDEMA
     Dosage: 40 MILLIGRAM DAILY;
     Route: 048
  2. CORDARONE [Concomitant]
  3. BLOOD THINNER [Concomitant]

REACTIONS (1)
  - Somnolence [Recovered/Resolved]
